FAERS Safety Report 17992599 (Version 4)
Quarter: 2020Q4

REPORT INFORMATION
  Report Type: Report from Study
  Country: US (occurrence: US)
  Receive Date: 20200707
  Receipt Date: 20201124
  Transmission Date: 20210113
  Serious: Yes (Hospitalization, Other)
  Sender: FDA-Public Use
  Company Number: NVSC2020US188354

PATIENT
  Sex: Female

DRUGS (1)
  1. MAYZENT [Suspect]
     Active Substance: SIPONIMOD
     Indication: MULTIPLE SCLEROSIS
     Dosage: 2 MG, QD
     Route: 048

REACTIONS (8)
  - Depressed level of consciousness [Unknown]
  - Hypertension [Unknown]
  - Asthenia [Unknown]
  - Vomiting [Unknown]
  - Basal ganglia infarction [Unknown]
  - Confusional state [Unknown]
  - Cerebrovascular accident [Unknown]
  - Coma [Unknown]
